FAERS Safety Report 7138812-6 (Version None)
Quarter: 2010Q4

REPORT INFORMATION
  Report Type: 
  Country: None (occurrence: None)
  Receive Date: 20101206
  Receipt Date: 20101124
  Transmission Date: 20110411
  Serious: Yes (Hospitalization, Other)
  Sender: FDA-Public Use
  Company Number: JP-ELI_LILLY_AND_COMPANY-JP201006002263

PATIENT
  Age: 26 Year
  Sex: Female

DRUGS (1)
  1. HUMULIN R [Suspect]
     Dosage: 200 D/F, UNKNOWN
     Route: 058

REACTIONS (5)
  - HYPOGLYCAEMIA [None]
  - INTENTIONAL DRUG MISUSE [None]
  - INTENTIONAL OVERDOSE [None]
  - OFF LABEL USE [None]
  - SUICIDE ATTEMPT [None]
